FAERS Safety Report 5732990-9 (Version None)
Quarter: 2008Q2

REPORT INFORMATION
  Report Type: 
  Country: None (occurrence: None)
  Receive Date: 20080509
  Receipt Date: 20080501
  Transmission Date: 20081010
  Serious: Yes (Hospitalization)
  Sender: FDA-Public Use
  Company Number: US-JNJFOC-20080500784

PATIENT
  Sex: Male
  Weight: 123.83 kg

DRUGS (1)
  1. REMICADE [Suspect]
     Indication: SARCOIDOSIS
     Route: 042

REACTIONS (1)
  - LOWER RESPIRATORY TRACT INFLAMMATION [None]
